FAERS Safety Report 14487974 (Version 4)
Quarter: 2018Q2

REPORT INFORMATION
  Report Type: Spontaneous
  Country: FR (occurrence: FR)
  Receive Date: 20180205
  Receipt Date: 20180411
  Transmission Date: 20180711
  Serious: Yes (Life-Threatening, Other)
  Sender: FDA-Public Use
  Company Number: FR-PFIZER INC-2018037687

PATIENT
  Sex: Male

DRUGS (4)
  1. GINKGO /01003101/ [Suspect]
     Active Substance: GINKGO
     Dosage: UNK
  2. ROFECOXIB [Suspect]
     Active Substance: ROFECOXIB
     Dosage: UNK
  3. ATORVASTATIN CALCIUM. [Suspect]
     Active Substance: ATORVASTATIN CALCIUM
     Dosage: UNK
  4. LISINOPRIL + HIDROCLOROTIAZIDA [Suspect]
     Active Substance: HYDROCHLOROTHIAZIDE\LISINOPRIL
     Dosage: UNK
     Route: 048

REACTIONS (1)
  - Acquired haemophilia [Unknown]
